FAERS Safety Report 4493545-X (Version None)
Quarter: 2004Q4

REPORT INFORMATION
  Report Type: 
  Country: None (occurrence: None)
  Receive Date: 20041102
  Receipt Date: 20041102
  Transmission Date: 20050328
  Serious: Yes (Hospitalization)
  Sender: FDA-Public Use
  Company Number: None

PATIENT
  Age: 75 Year
  Sex: Female

DRUGS (7)
  1. LORAZEPAM [Suspect]
     Dates: start: 20040224, end: 20040227
  2. POTASSIUM [Concomitant]
  3. DYAZIDE [Concomitant]
  4. ESOMEPRAZOLE [Concomitant]
  5. QUINAPRIL HCL [Concomitant]
  6. LEVOTHYROXINE SODIUM [Concomitant]
  7. CITALOPRAM [Concomitant]

REACTIONS (2)
  - HALLUCINATION [None]
  - MENTAL STATUS CHANGES [None]
